FAERS Safety Report 4330536-3 (Version None)
Quarter: 2004Q1

REPORT INFORMATION
  Report Type: 
  Country: None (occurrence: None)
  Receive Date: 20040329
  Receipt Date: 20040129
  Transmission Date: 20041129
  Serious: Yes (Death, Life-Threatening, Other)
  Sender: FDA-Public Use
  Company Number: 2003125903

PATIENT
  Age: 38 Year
  Sex: Male
  Weight: 61.2356 kg

DRUGS (1)
  1. DILANTIN KAPSEAL [Suspect]
     Indication: CONVULSION
     Dates: start: 20000101

REACTIONS (2)
  - CONDITION AGGRAVATED [None]
  - CONVULSION [None]
